FAERS Safety Report 22094066 (Version 1)
Quarter: 2023Q1

REPORT INFORMATION
  Report Type: Report from Study
  Country: US (occurrence: US)
  Receive Date: 20230314
  Receipt Date: 20230314
  Transmission Date: 20230418
  Serious: Yes (Hospitalization)
  Sender: FDA-Public Use
  Company Number: US-JNJFOC-20230308645

PATIENT
  Age: 66 Year
  Sex: Male
  Weight: 148.8 kg

DRUGS (3)
  1. DARATUMUMAB [Suspect]
     Active Substance: DARATUMUMAB
     Indication: Plasma cell myeloma
     Dosage: DAYS 1,8,15,22.
     Route: 041
     Dates: start: 20221229
  2. LENALIDOMIDE [Suspect]
     Active Substance: LENALIDOMIDE
     Indication: Plasma cell myeloma
     Dosage: DAYS 1-21, FOLLOWED BY 7 DAYS OFF.
     Route: 048
     Dates: start: 20221227
  3. DEXAMETHASONE [Concomitant]
     Active Substance: DEXAMETHASONE
     Indication: Plasma cell myeloma
     Dosage: 20 MG IN INFUSION D1,8,15,22 ; 20 MG AT HOME D2,9,16,23.
     Route: 048
     Dates: start: 20221227

REACTIONS (1)
  - Atrial fibrillation [Recovered/Resolved]

NARRATIVE: CASE EVENT DATE: 20230108
